FAERS Safety Report 6538541-3 (Version None)
Quarter: 2010Q1

REPORT INFORMATION
  Report Type: 
  Country: None (occurrence: None)
  Receive Date: 20100113
  Receipt Date: 20100113
  Transmission Date: 20100710
  Serious: Yes (Death)
  Sender: FDA-Public Use
  Company Number: None

PATIENT
  Sex: Male
  Weight: 74.8435 kg

DRUGS (2)
  1. AZACITIDINE 75MG/M2 QD S/C [Suspect]
     Indication: ACUTE MYELOID LEUKAEMIA
     Dosage: AZACITIDINE 75MG/M2 QD S/C
     Route: 058
  2. LENALIDOMIDE 5 MG QD PO [Suspect]
     Dosage: LENALIDOMIDE 5 MG QD PO
     Route: 048

REACTIONS (1)
  - DEATH [None]
